FAERS Safety Report 8818727 (Version 1)
Quarter: 2012Q4

REPORT INFORMATION
  Report Type: 
  Country: US (occurrence: US)
  Receive Date: 20121001
  Receipt Date: 20121001
  Transmission Date: 20130627
  Serious: Yes (Death, Other)
  Sender: FDA-Public Use
  Company Number: US-ROCHE-1129527

PATIENT
  Sex: Male

DRUGS (3)
  1. HERCEPTIN [Suspect]
     Indication: LUNG NEOPLASM MALIGNANT
     Route: 065
  2. TAXOTERE [Suspect]
     Indication: PRODUCT USED FOR UNKNOWN INDICATION
  3. GEMZAR [Suspect]
     Indication: PRODUCT USED FOR UNKNOWN INDICATION

REACTIONS (2)
  - Death [Fatal]
  - Platelet count decreased [Unknown]
